FAERS Safety Report 11149578 (Version 1)
Quarter: 2015Q2

REPORT INFORMATION
  Report Type: Spontaneous
  Country: US (occurrence: None)
  Receive Date: 20150528
  Receipt Date: 20150528
  Transmission Date: 20150821
  Serious: No
  Sender: FDA-Public Use
  Company Number: None

PATIENT
  Age: 54 Year
  Sex: Male
  Weight: 108.86 kg

DRUGS (5)
  1. LEVEMIR [Concomitant]
     Active Substance: INSULIN DETEMIR
  2. ADULT GUMMIE VITAMINES [Concomitant]
  3. GLIMIPEIDE [Concomitant]
  4. LEVOTHYROXINE [Concomitant]
     Active Substance: LEVOTHYROXINE
  5. BYETTA [Suspect]
     Active Substance: EXENATIDE

REACTIONS (5)
  - Syringe issue [None]
  - Product quality issue [None]
  - Incorrect dose administered [None]
  - Product contamination physical [None]
  - Product packaging issue [None]

NARRATIVE: CASE EVENT DATE: 20150518
